FAERS Safety Report 9753777 (Version 2)
Quarter: 2013Q4

REPORT INFORMATION
  Report Type: Spontaneous
  Country: US (occurrence: US)
  Receive Date: 20131213
  Receipt Date: 20131213
  Transmission Date: 20140711
  Serious: No
  Sender: FDA-Public Use
  Company Number: US-GILEAD-2010-0026675

PATIENT
  Sex: Female
  Weight: 67.58 kg

DRUGS (14)
  1. LETAIRIS [Suspect]
     Indication: PULMONARY ARTERIAL HYPERTENSION
     Route: 048
     Dates: start: 20080820, end: 20100225
  2. OXYGEN [Concomitant]
  3. ASPIRIN [Concomitant]
  4. PLAVIX [Concomitant]
  5. ATENOLOL [Concomitant]
  6. CELEBREX [Concomitant]
  7. CARBIDOPA-LEVODOPA [Concomitant]
  8. PROPYLTHIOURACIL [Concomitant]
  9. COENZYME Q10 [Concomitant]
  10. BENEFIBER [Concomitant]
  11. CALCIUM +D [Concomitant]
  12. VITAMIN B-12 [Concomitant]
  13. MULTIVITAMINS [Concomitant]
  14. LEVOTHROID [Concomitant]

REACTIONS (1)
  - Nasal congestion [Unknown]
